FAERS Safety Report 8906336 (Version 1)
Quarter: 2012Q4

REPORT INFORMATION
  Report Type: Spontaneous
  Country: BE (occurrence: None)
  Receive Date: 20121107
  Receipt Date: 20121107
  Transmission Date: 20130627
  Serious: Yes (Other)
  Sender: FDA-Public Use
  Company Number: 2012CP000142

PATIENT
  Age: 55 Year
  Sex: Female

DRUGS (3)
  1. PERFUSALGAN [Suspect]
  2. DAFALGAN [Suspect]
  3. FELDENE [Suspect]

REACTIONS (4)
  - Drug eruption [None]
  - Skin test positive [None]
  - Wrong technique in drug usage process [None]
  - Occupational exposure to product [None]
